FAERS Safety Report 4918145-6 (Version None)
Quarter: 2006Q1

REPORT INFORMATION
  Report Type: 
  Country: None (occurrence: None)
  Receive Date: 20060221
  Receipt Date: 20051104
  Transmission Date: 20060701
  Serious: Yes (Hospitalization)
  Sender: FDA-Public Use
  Company Number: US-MERCK-0511USA01050

PATIENT
  Age: 64 Year
  Sex: Female
  Weight: 59 kg

DRUGS (3)
  1. VIOXX [Suspect]
     Indication: ARTHRITIS
     Route: 048
     Dates: start: 20000101, end: 20020304
  2. VIOXX [Suspect]
     Route: 048
     Dates: start: 20040618, end: 20040930
  3. ZOCOR [Concomitant]
     Route: 065

REACTIONS (9)
  - CHEST PAIN [None]
  - CHRONIC FATIGUE SYNDROME [None]
  - DYSPEPSIA [None]
  - DYSPNOEA [None]
  - HYPERTENSION [None]
  - JOINT INJURY [None]
  - LIMB INJURY [None]
  - OEDEMA [None]
  - PULMONARY EMBOLISM [None]
